FAERS Safety Report 5716587-2 (Version None)
Quarter: 2008Q2

REPORT INFORMATION
  Report Type: 
  Country: None (occurrence: None)
  Receive Date: 20080424
  Receipt Date: 20080411
  Transmission Date: 20081010
  Serious: Yes (Hospitalization)
  Sender: FDA-Public Use
  Company Number: CA-ELI_LILLY_AND_COMPANY-CA200804003452

PATIENT
  Age: 74 Year
  Sex: Female

DRUGS (11)
  1. FORTEO [Suspect]
     Indication: OSTEOPOROSIS
     Dosage: 20 UG, DAILY (1/D)
     Route: 058
     Dates: start: 20061001
  2. PREVACID [Concomitant]
  3. ACCURETIC [Concomitant]
  4. NORVASC [Concomitant]
  5. EVISTA [Concomitant]
  6. ZOCOR [Concomitant]
  7. CALCIUM WITH VITAMIN D /00944201/ [Concomitant]
  8. CENTRUM [Concomitant]
  9. ADVIL LIQUI-GELS [Concomitant]
     Dosage: UNK, AS NEEDED
  10. TYLENOL                                 /SCH/ [Concomitant]
     Dosage: UNK, AS NEEDED
  11. SERC                               /00034201/ [Concomitant]
     Dosage: UNK, AS NEEDED

REACTIONS (4)
  - BLOOD COUNT ABNORMAL [None]
  - INTESTINAL HAEMORRHAGE [None]
  - RECTAL HAEMORRHAGE [None]
  - VITAMIN D DECREASED [None]
